FAERS Safety Report 18583984 (Version 4)
Quarter: 2021Q3

REPORT INFORMATION
  Report Type: Spontaneous
  Country: US (occurrence: US)
  Receive Date: 20201207
  Receipt Date: 20210908
  Transmission Date: 20211014
  Serious: Yes (Other)
  Sender: FDA-Public Use
  Company Number: US-AMGEN-USASP2020196141

PATIENT
  Age: 77 Year
  Sex: Female

DRUGS (4)
  1. NPLATE [Suspect]
     Active Substance: ROMIPLOSTIM
     Indication: IMMUNE THROMBOCYTOPENIA
     Dosage: 500 MICROGRAM, QWK
     Route: 058
     Dates: start: 2020
  2. NPLATE [Suspect]
     Active Substance: ROMIPLOSTIM
     Dosage: 360 MICROGRAM, QWK
     Route: 058
     Dates: start: 2020
  3. NPLATE [Suspect]
     Active Substance: ROMIPLOSTIM
     Dosage: 392 MICROGRAM, QWK
     Route: 058
     Dates: start: 2020
  4. NPLATE [Suspect]
     Active Substance: ROMIPLOSTIM
     Dosage: 515 MICROGRAM, QWK (DOSE INCREASED)
     Route: 058
     Dates: start: 20201201

REACTIONS (7)
  - Therapy non-responder [Unknown]
  - Cerebrovascular accident [Unknown]
  - Mental impairment [Unknown]
  - Visual impairment [Unknown]
  - Product dose omission issue [Unknown]
  - Memory impairment [Unknown]
  - Platelet count decreased [Unknown]

NARRATIVE: CASE EVENT DATE: 2020
